FAERS Safety Report 5749022-9 (Version None)
Quarter: 2008Q2

REPORT INFORMATION
  Report Type: 
  Country: None (occurrence: None)
  Receive Date: 20080522
  Receipt Date: 20080506
  Transmission Date: 20081010
  Serious: Yes (Other)
  Sender: FDA-Public Use
  Company Number: 8027194

PATIENT
  Age: 16 Year
  Sex: Male
  Weight: 65 kg

DRUGS (4)
  1. KEPPRA [Suspect]
     Dosage: 3000 MG /D
     Dates: start: 20061101, end: 20070913
  2. KEPPRA [Suspect]
     Dosage: 2500 MG /D
     Dates: start: 20070914
  3. KEPPRA [Suspect]
     Dosage: 1000 MG 2/D
  4. CARBAMAZEPINE [Concomitant]

REACTIONS (3)
  - MUSCULOSKELETAL PAIN [None]
  - SYSTEMIC LUPUS ERYTHEMATOSUS [None]
  - WEIGHT DECREASED [None]
